FAERS Safety Report 8416377-6 (Version None)
Quarter: 2012Q2

REPORT INFORMATION
  Report Type: 
  Country: None (occurrence: None)
  Receive Date: 20120606
  Receipt Date: 20120528
  Transmission Date: 20120825
  Serious: Yes (Other)
  Sender: FDA-Public Use
  Company Number: LB-BRISTOL-MYERS SQUIBB COMPANY-16634453

PATIENT
  Age: 25 Year
  Sex: Female

DRUGS (6)
  1. DACTINOMYCIN [Suspect]
     Indication: RHABDOMYOSARCOMA
  2. CYCLOPHOSPHAMIDE [Suspect]
     Indication: RHABDOMYOSARCOMA
  3. IFOSFAMIDE [Suspect]
     Indication: RHABDOMYOSARCOMA
  4. ETOPOSIDE [Suspect]
     Indication: RHABDOMYOSARCOMA
  5. DOXORUBICIN HCL [Suspect]
     Indication: RHABDOMYOSARCOMA
  6. VINCRISTINE [Suspect]
     Indication: RHABDOMYOSARCOMA

REACTIONS (1)
  - PREMATURE MENOPAUSE [None]
